FAERS Safety Report 5316215-4 (Version None)
Quarter: 2007Q2

REPORT INFORMATION
  Report Type: 
  Country: None (occurrence: None)
  Receive Date: 20070503
  Receipt Date: 20070425
  Transmission Date: 20071010
  Serious: Yes (Death, Hospitalization)
  Sender: FDA-Public Use
  Company Number: US-ROXANE LABORATORIES, INC-2007-BP-05654RO

PATIENT
  Age: 73 Year
  Sex: Female

DRUGS (9)
  1. CYCLOPHOSPHAMIDE [Suspect]
     Indication: CHEMOTHERAPY
     Route: 042
  2. PREDNISONE TAB [Suspect]
     Indication: CHEMOTHERAPY
     Route: 048
  3. RITUXIMAB [Suspect]
     Indication: CHEMOTHERAPY
     Route: 042
  4. DOXORUBICIN HCL [Suspect]
     Indication: CHEMOTHERAPY
     Route: 042
  5. VINCRISTINE [Suspect]
     Indication: CHEMOTHERAPY
     Route: 042
  6. AMIODARONE HCL [Suspect]
     Route: 048
  7. SIMVASTATIN [Concomitant]
     Route: 048
  8. WARFARIN [Concomitant]
     Route: 048
  9. ATENOLOL [Concomitant]

REACTIONS (10)
  - CARDIOPULMONARY FAILURE [None]
  - DEEP VEIN THROMBOSIS [None]
  - HYPOXIA [None]
  - INTERSTITIAL LUNG DISEASE [None]
  - LUNG INFECTION PSEUDOMONAL [None]
  - MULTI-ORGAN FAILURE [None]
  - PNEUMOMEDIASTINUM [None]
  - PNEUMOTHORAX [None]
  - PULMONARY TOXICITY [None]
  - SEPTIC SHOCK [None]
